FAERS Safety Report 8361467-X (Version None)
Quarter: 2012Q2

REPORT INFORMATION
  Report Type: 
  Country: None (occurrence: None)
  Receive Date: 20120515
  Receipt Date: 20120509
  Transmission Date: 20120825
  Serious: Yes (Other)
  Sender: FDA-Public Use
  Company Number: US-PFIZER INC-2012113945

PATIENT
  Sex: Male

DRUGS (5)
  1. RISPERDAL [Concomitant]
     Dosage: 1 MG, 1X/DAY
  2. CLONIDINE [Concomitant]
     Dosage: 0.1 MG, 1X/DAY
  3. BENEFIX [Suspect]
     Indication: FACTOR IX DEFICIENCY
     Dosage: 2800 IU, UNK
     Dates: end: 20120430
  4. ATENOLOL [Concomitant]
     Indication: HEADACHE
     Dosage: 25 MG, 1X/DAY
  5. ABILIFY [Concomitant]
     Dosage: 15 MG, 1X/DAY

REACTIONS (4)
  - LOSS OF CONSCIOUSNESS [None]
  - COAGULATION FACTOR IX LEVEL DECREASED [None]
  - EPISTAXIS [None]
  - FACIAL BONES FRACTURE [None]
